FAERS Safety Report 4631677-3 (Version None)
Quarter: 2005Q2

REPORT INFORMATION
  Report Type: 
  Country: None (occurrence: None)
  Receive Date: 20050407
  Receipt Date: 20050404
  Transmission Date: 20051028
  Serious: Yes (Other)
  Sender: FDA-Public Use
  Company Number: 2005-BP-05445RO

PATIENT
  Age: 70 Year
  Sex: Male

DRUGS (4)
  1. LEUCOVORIN CALCIUM [Suspect]
     Indication: RECTAL CANCER
     Dosage: SEE IMAGE
     Route: 048
     Dates: start: 20040902, end: 20040909
  2. UFT [Suspect]
     Indication: RECTAL CANCER
     Dosage: 4 CAPSULES/DAY, PO
     Route: 048
     Dates: start: 20040902, end: 20040909
  3. UFT [Suspect]
     Indication: RECTAL CANCER
     Dosage: 4 CAPSULES/DAY, PO
     Route: 048
     Dates: start: 20041020
  4. MAGNESIUM OXIDE (MAGNESIUM OXIDE) [Concomitant]

REACTIONS (4)
  - ANOREXIA [None]
  - HAEMOGLOBIN DECREASED [None]
  - ORAL MUCOSAL DISCOLOURATION [None]
  - STOMATITIS [None]
